FAERS Safety Report 6005932-9 (Version None)
Quarter: 2008Q4

REPORT INFORMATION
  Report Type: 
  Country: None (occurrence: None)
  Receive Date: 20081216
  Receipt Date: 20081216
  Transmission Date: 20090506
  Serious: Yes (Life-Threatening, Other)
  Sender: FDA-Public Use
  Company Number: None

PATIENT
  Age: 59 Year
  Sex: Male
  Weight: 124.7392 kg

DRUGS (1)
  1. ISOSORBIDE MONONITRATE [Suspect]
     Indication: HYPERTENSION
     Dosage: 60MG TWICE DAILY
     Dates: start: 20080924, end: 20081215

REACTIONS (2)
  - BLOOD PRESSURE DECREASED [None]
  - LOSS OF CONSCIOUSNESS [None]
